FAERS Safety Report 9226581 (Version 2)
Quarter: 2013Q2

REPORT INFORMATION
  Report Type: Spontaneous
  Country: US (occurrence: US)
  Receive Date: 20130412
  Receipt Date: 20130523
  Transmission Date: 20140414
  Serious: Yes (Hospitalization)
  Sender: FDA-Public Use
  Company Number: US-BIOGENIDEC-2013BI030304

PATIENT
  Age: 48 Year
  Sex: Male

DRUGS (1)
  1. AVONEX [Suspect]
     Indication: MULTIPLE SCLEROSIS
     Route: 030
     Dates: start: 19990415, end: 201304

REACTIONS (6)
  - Multiple sclerosis [Recovered/Resolved]
  - Dyspepsia [Not Recovered/Not Resolved]
  - Tremor [Not Recovered/Not Resolved]
  - Liver disorder [Not Recovered/Not Resolved]
  - Alopecia [Not Recovered/Not Resolved]
  - Influenza like illness [Not Recovered/Not Resolved]
